FAERS Safety Report 25208285 (Version 1)
Quarter: 2025Q2

REPORT INFORMATION
  Report Type: Spontaneous
  Country: US (occurrence: None)
  Receive Date: 20250416
  Receipt Date: 20250416
  Transmission Date: 20250717
  Serious: Yes (Death)
  Sender: FDA-CTU
  Company Number: None

PATIENT
  Age: 73 Year
  Sex: Female
  Weight: 92.5 kg

DRUGS (1)
  1. JARDIANCE [Suspect]
     Active Substance: EMPAGLIFLOZIN
     Indication: Type 2 diabetes mellitus
     Dosage: FREQUENCY : DAILY;?
     Route: 048
     Dates: start: 20240508, end: 20250218

REACTIONS (8)
  - Lethargy [None]
  - Acute kidney injury [None]
  - Amyotrophic lateral sclerosis [None]
  - Klebsiella infection [None]
  - Cystitis escherichia [None]
  - Candida test positive [None]
  - Klebsiella test positive [None]
  - Encephalopathy [None]

NARRATIVE: CASE EVENT DATE: 20250224
